FAERS Safety Report 5999877-8 (Version None)
Quarter: 2008Q4

REPORT INFORMATION
  Report Type: 
  Country: None (occurrence: None)
  Receive Date: 20081215
  Receipt Date: 20080109
  Transmission Date: 20090506
  Serious: No
  Sender: FDA-Public Use
  Company Number: US-AMGEN-KDL230419

PATIENT
  Sex: Male
  Weight: 80.4 kg

DRUGS (8)
  1. ENBREL [Suspect]
     Indication: POLYMYALGIA RHEUMATICA
     Route: 058
     Dates: start: 20070613
  2. PREDNISONE TAB [Suspect]
  3. METHOTREXATE [Concomitant]
     Route: 048
     Dates: start: 20061101
  4. PERCOCET [Concomitant]
  5. TEMAZEPAM [Concomitant]
  6. SIMVASTATIN [Concomitant]
  7. LEVOTHYROXINE SODIUM [Concomitant]
  8. POTASSIUM CHLORIDE [Concomitant]

REACTIONS (5)
  - FATIGUE [None]
  - MYALGIA [None]
  - NASOPHARYNGITIS [None]
  - SINUS CONGESTION [None]
  - TREMOR [None]
